FAERS Safety Report 6977525-8 (Version None)
Quarter: 2010Q3

REPORT INFORMATION
  Report Type: 
  Country: None (occurrence: None)
  Receive Date: 20100910
  Receipt Date: 20100908
  Transmission Date: 20110219
  Serious: Yes (Other)
  Sender: FDA-Public Use
  Company Number: US-AMGEN-QUU385271

PATIENT
  Sex: Male

DRUGS (2)
  1. ENBREL [Suspect]
     Indication: PSORIATIC ARTHROPATHY
     Route: 058
  2. ENBREL [Suspect]
     Indication: PSORIASIS

REACTIONS (8)
  - CHOLANGITIS SCLEROSING [None]
  - HAEMORRHAGIC DIATHESIS [None]
  - HEPATIC ENZYME INCREASED [None]
  - INCREASED TENDENCY TO BRUISE [None]
  - INFECTION [None]
  - PLATELET COUNT DECREASED [None]
  - PSORIATIC ARTHROPATHY [None]
  - THROMBOSIS [None]
